FAERS Safety Report 9366555 (Version 1)
Quarter: 2013Q2

REPORT INFORMATION
  Report Type: Spontaneous
  Country: NL (occurrence: NL)
  Receive Date: 20130625
  Receipt Date: 20130625
  Transmission Date: 20140414
  Serious: Yes (Other)
  Sender: FDA-Public Use
  Company Number: NL-MYLANLABS-2013S1013394

PATIENT
  Sex: Female

DRUGS (7)
  1. RANITIDINE [Suspect]
     Indication: PREMEDICATION
     Dosage: 50MG, 30 MINUTES PRIOR TO CHEMOTHERAPY
     Route: 040
  2. CLEMASTINE [Concomitant]
     Indication: PREMEDICATION
     Dosage: 2MG, 30 MINUTES PRIOR TO CHEMOTHERAPY
     Route: 040
  3. ONDANSETRON [Concomitant]
     Indication: PREMEDICATION
     Dosage: 8MG, 15 MINUTES BEFORE CHEMOTHERAPY
     Route: 041
  4. DEXAMETHASONE [Concomitant]
     Indication: PREMEDICATION
     Dosage: 20MG, 15 MINUTES PRIOR TO CHEMOTHERAPY
     Route: 041
  5. ETOPOSIDE [Concomitant]
     Indication: OVARIAN CANCER
     Route: 048
     Dates: start: 200902
  6. PACLITAXEL [Concomitant]
     Indication: OVARIAN CANCER
     Route: 042
     Dates: start: 200908
  7. CARBOPLATIN [Concomitant]
     Indication: OVARIAN CANCER
     Route: 042
     Dates: start: 200908

REACTIONS (4)
  - Hypersensitivity [Recovered/Resolved]
  - Nausea [Recovered/Resolved]
  - Vomiting [Recovered/Resolved]
  - Circulatory collapse [Recovered/Resolved]
